FAERS Safety Report 8237919-X (Version None)
Quarter: 2012Q1

REPORT INFORMATION
  Report Type: 
  Country: None (occurrence: None)
  Receive Date: 20120327
  Receipt Date: 20120321
  Transmission Date: 20120608
  Serious: Yes (Other)
  Sender: FDA-Public Use
  Company Number: US-PFIZER INC-2012074162

PATIENT
  Sex: Female
  Weight: 88.889 kg

DRUGS (4)
  1. LYRICA [Suspect]
     Dosage: 75 MG, 2X/DAY
     Route: 048
  2. OXYCONTIN [Concomitant]
     Indication: ROAD TRAFFIC ACCIDENT
     Dosage: UNK, 2X/DAY
  3. LYRICA [Suspect]
     Indication: FIBROMYALGIA
     Dosage: 50 MG, 2X/DAY
     Route: 048
     Dates: start: 20110101
  4. LYRICA [Suspect]
     Dosage: 150 MG, 2X/DAY
     Route: 048
     Dates: start: 20120101

REACTIONS (3)
  - RASH [None]
  - HERPES ZOSTER [None]
  - PAIN [None]
